FAERS Safety Report 10216285 (Version 1)
Quarter: 2014Q2

REPORT INFORMATION
  Report Type: Report from Study
  Country: US (occurrence: None)
  Receive Date: 20140602
  Receipt Date: 20140602
  Transmission Date: 20141212
  Serious: Yes (Hospitalization)
  Sender: FDA-Public Use
  Company Number: 2365577

PATIENT
  Age: 69 Year
  Sex: Female
  Weight: 99 kg

DRUGS (3)
  1. NIPENT [Suspect]
     Indication: CHRONIC LYMPHOCYTIC LEUKAEMIA
     Dosage: CYCLICAL
     Dates: start: 20121203, end: 20130225
  2. CYCLOPHOSPHAMIDE [Suspect]
     Indication: CHRONIC LYMPHOCYTIC LEUKAEMIA
     Dosage: 85 DAYS.
     Dates: start: 20121203, end: 20130225
  3. RITUXIMAB [Suspect]
     Indication: CHRONIC LYMPHOCYTIC LEUKAEMIA
     Dosage: 85 DAYS
     Dates: start: 20121203, end: 20130225

REACTIONS (11)
  - Hypoxia [None]
  - Pleural effusion [None]
  - Lung infection [None]
  - Dyspnoea [None]
  - Productive cough [None]
  - Chest pain [None]
  - Palpitations [None]
  - Confusional state [None]
  - Nausea [None]
  - Vomiting [None]
  - Pneumonia [None]
